FAERS Safety Report 9504018 (Version 1)
Quarter: 2013Q3

REPORT INFORMATION
  Report Type: Spontaneous
  Country: US (occurrence: None)
  Receive Date: 20130905
  Receipt Date: 20130905
  Transmission Date: 20140515
  Serious: Yes (Disabling)
  Sender: FDA-Public Use
  Company Number: None

PATIENT
  Age: 60 Year
  Sex: Female
  Weight: 61.24 kg

DRUGS (1)
  1. SANDOSTATIN LAR [Suspect]
     Indication: ACROMEGALY
     Dosage: INJECTION  MONTHLY  DEEP INTRAMUSCULAR INJECTION
     Route: 030
     Dates: start: 1998, end: 2009

REACTIONS (4)
  - Muscular weakness [None]
  - Arthralgia [None]
  - Memory impairment [None]
  - Myalgia [None]
